FAERS Safety Report 22160404 (Version 4)
Quarter: 2023Q2

REPORT INFORMATION
  Report Type: Spontaneous
  Country: BR (occurrence: BR)
  Receive Date: 20230331
  Receipt Date: 20230427
  Transmission Date: 20230721
  Serious: Yes (Hospitalization, Other)
  Sender: FDA-Public Use
  Company Number: BR-SA-SAC20230329001018

PATIENT
  Age: 5 Year
  Sex: Male
  Weight: 27.8 kg

DRUGS (6)
  1. CLOBAZAM [Suspect]
     Active Substance: CLOBAZAM
     Indication: Seizure
     Dosage: 10 MG, QD
     Route: 048
     Dates: start: 202212
  2. CLOBAZAM [Suspect]
     Active Substance: CLOBAZAM
     Indication: Mood swings
  3. LAMOTRIGINE [Suspect]
     Active Substance: LAMOTRIGINE
     Indication: Product used for unknown indication
     Dosage: UNK
     Route: 048
  4. RISPERIDONE [Concomitant]
     Active Substance: RISPERIDONE
     Indication: Affective disorder
     Dosage: 1 DF, QD
     Route: 048
     Dates: start: 20230306
  5. CARBAMAZEPINE [Concomitant]
     Active Substance: CARBAMAZEPINE
     Indication: Seizure
     Dosage: 1 DF, QD
     Route: 048
     Dates: start: 20230320
  6. PLENDIL [Concomitant]
     Active Substance: FELODIPINE
     Indication: Lung disorder
     Dosage: 2 DF, BID
     Route: 065

REACTIONS (11)
  - Petechiae [Recovered/Resolved]
  - Rash [Recovered/Resolved]
  - Immunodeficiency [Unknown]
  - Apnoea [Unknown]
  - Skin discolouration [Unknown]
  - Tonsillar hypertrophy [Unknown]
  - Dyspnoea [Unknown]
  - Platelet count decreased [Unknown]
  - Hypersensitivity [Recovered/Resolved]
  - Somnolence [Unknown]
  - Overdose [Unknown]

NARRATIVE: CASE EVENT DATE: 20230101
